FAERS Safety Report 7685302-8 (Version None)
Quarter: 2011Q3

REPORT INFORMATION
  Report Type: 
  Country: None (occurrence: None)
  Receive Date: 20110816
  Receipt Date: 20110811
  Transmission Date: 20111222
  Serious: Yes (Other)
  Sender: FDA-Public Use
  Company Number: US-PFIZER INC-2011185882

PATIENT
  Sex: Female

DRUGS (4)
  1. CELEBREX [Concomitant]
     Dosage: UNK
  2. DETROL LA [Concomitant]
     Dosage: UNK
  3. NEURONTIN [Concomitant]
     Dosage: UNK
  4. LYRICA [Suspect]
     Dosage: UNK

REACTIONS (1)
  - MUSCULOSKELETAL STIFFNESS [None]
